FAERS Safety Report 23457709 (Version 2)
Quarter: 2024Q1

REPORT INFORMATION
  Report Type: Spontaneous
  Country: US (occurrence: US)
  Receive Date: 20240130
  Receipt Date: 20240203
  Transmission Date: 20240410
  Serious: No
  Sender: FDA-Public Use
  Company Number: US-JNJFOC-20240174894

PATIENT
  Age: 80 Year
  Sex: Female

DRUGS (2)
  1. DARZALEX [Suspect]
     Active Substance: DARATUMUMAB
     Indication: Plasma cell myeloma
     Dosage: 2X 400MG AND 2X 100MG (TOTAL DOSE OF 1000MG)
     Route: 042
  2. DARZALEX [Suspect]
     Active Substance: DARATUMUMAB
     Dosage: 2X 400MG AND 2X 100MG (TOTAL DOSE OF 1000MG)
     Route: 042

REACTIONS (5)
  - Hypersensitivity [Unknown]
  - Dyspnoea [Unknown]
  - Chest discomfort [Unknown]
  - Infusion related reaction [Unknown]
  - Underdose [Unknown]

NARRATIVE: CASE EVENT DATE: 20240112
